FAERS Safety Report 25495492 (Version 1)
Quarter: 2025Q2

REPORT INFORMATION
  Report Type: Spontaneous
  Country: FR (occurrence: FR)
  Receive Date: 20250630
  Receipt Date: 20250630
  Transmission Date: 20250716
  Serious: Yes (Other)
  Sender: MYLAN
  Company Number: None

PATIENT
  Age: 53 Year
  Sex: Female

DRUGS (3)
  1. ETOPOSIDE [Suspect]
     Active Substance: ETOPOSIDE
     Indication: Chemotherapy
     Dosage: 176 MILLIGRAM, BID (176 MG TWICE A DAY, 1DF)
     Dates: start: 20241101, end: 20241103
  2. CARMUSTINE [Suspect]
     Active Substance: CARMUSTINE
     Indication: Chemotherapy
     Dates: start: 20241101, end: 20241101
  3. CYTARABINE [Suspect]
     Active Substance: CYTARABINE
     Indication: Chemotherapy
     Dosage: 250 MILLIGRAM, BID (250 MG TWICE A DAY )
     Dates: start: 20241101, end: 20241101

REACTIONS (1)
  - Toxic skin eruption [Recovered/Resolved]

NARRATIVE: CASE EVENT DATE: 20241103
